FAERS Safety Report 13209624 (Version 1)
Quarter: 2017Q1

REPORT INFORMATION
  Report Type: Spontaneous
  Country: US (occurrence: US)
  Receive Date: 20170209
  Receipt Date: 20170209
  Transmission Date: 20170428
  Serious: No
  Sender: FDA-Public Use
  Company Number: US-ALLERGAN-1651407US

PATIENT
  Sex: Female

DRUGS (1)
  1. BOTOX COSMETIC [Suspect]
     Active Substance: ONABOTULINUMTOXINA
     Indication: SKIN WRINKLING
     Dosage: UNK, SINGLE
     Route: 030
     Dates: start: 20160310, end: 20160310

REACTIONS (13)
  - Paraesthesia [Recovered/Resolved]
  - Photosensitivity reaction [Recovered/Resolved]
  - Muscle spasms [Recovered/Resolved]
  - Muscle twitching [Recovered/Resolved]
  - Arthralgia [Recovered/Resolved]
  - Pigmentation disorder [Recovered/Resolved]
  - Skin burning sensation [Recovered/Resolved]
  - Skin infection [Recovered/Resolved]
  - Rash generalised [Recovered/Resolved]
  - Pruritus [Recovered/Resolved]
  - Tinnitus [Recovering/Resolving]
  - Headache [Recovered/Resolved]
  - Hypoaesthesia [Recovered/Resolved]

NARRATIVE: CASE EVENT DATE: 201509
